FAERS Safety Report 8513872 (Version 15)
Quarter: 2014Q1

REPORT INFORMATION
  Report Type: Report from Study
  Country: GB (occurrence: GB)
  Receive Date: 20120416
  Receipt Date: 20140123
  Transmission Date: 20141002
  Serious: Yes (Other)
  Sender: FDA-Public Use
  Company Number: GB-ROCHE-1056349

PATIENT
  Age: 75 Year
  Sex: Male
  Weight: 77.9 kg

DRUGS (8)
  1. VEMURAFENIB [Suspect]
     Indication: MALIGNANT MELANOMA
     Dosage: DATE OF LAST DOSE PRIOR TO 1ST SAE:05 APR 2012
     Route: 048
     Dates: start: 20120105, end: 20120309
  2. VEMURAFENIB [Suspect]
     Route: 048
     Dates: start: 20120316, end: 20120329
  3. VEMURAFENIB [Suspect]
     Dosage: DOSE REDUCED
     Route: 048
     Dates: start: 20120405
  4. GLUCOSAMINE/CHONDROITIN [Concomitant]
     Route: 065
     Dates: start: 201101
  5. COD LIVER OIL [Concomitant]
     Route: 065
     Dates: start: 201101
  6. NYSTATIN [Concomitant]
     Route: 065
     Dates: start: 20120218, end: 20120426
  7. AVEENO LOTION [Concomitant]
     Route: 065
     Dates: start: 20120202
  8. FUCIBET CREAM [Concomitant]
     Route: 065
     Dates: start: 20120405

REACTIONS (2)
  - Blood creatinine increased [Not Recovered/Not Resolved]
  - Squamous cell carcinoma of skin [Recovered/Resolved]
